FAERS Safety Report 14475305 (Version 1)
Quarter: 2018Q1

REPORT INFORMATION
  Report Type: Spontaneous
  Country: GB (occurrence: GB)
  Receive Date: 20180201
  Receipt Date: 20180201
  Transmission Date: 20180509
  Serious: Yes (Life-Threatening, Hospitalization)
  Sender: FDA-Public Use
  Company Number: GB-TEVA-2018-GB-852800

PATIENT
  Age: 70 Year
  Sex: Female

DRUGS (12)
  1. MAGNESIUM ASPARTATE [Concomitant]
     Active Substance: MAGNESIUM ASPARTATE
  2. FLUOXETINE [Concomitant]
     Active Substance: FLUOXETINE HYDROCHLORIDE
  3. PARACETAMOL [Concomitant]
     Active Substance: ACETAMINOPHEN
  4. GLICLAZIDE [Concomitant]
     Active Substance: GLICLAZIDE
  5. RAMIPRIL. [Concomitant]
     Active Substance: RAMIPRIL
  6. ORAMORPH [Concomitant]
     Active Substance: MORPHINE SULFATE
  7. CLOTRIMAZOLE. [Concomitant]
     Active Substance: CLOTRIMAZOLE
  8. HUMULIN L [Concomitant]
     Active Substance: INSULIN HUMAN
  9. METFORMIN [Suspect]
     Active Substance: METFORMIN HYDROCHLORIDE
     Indication: TYPE 2 DIABETES MELLITUS
     Route: 048
     Dates: start: 20020107
  10. TINZAPARIN [Concomitant]
     Active Substance: TINZAPARIN
  11. NITROFURANTOIN. [Concomitant]
     Active Substance: NITROFURANTOIN
  12. ATORVASTATIN [Concomitant]
     Active Substance: ATORVASTATIN

REACTIONS (2)
  - Syncope [Unknown]
  - Blood lactic acid increased [Recovering/Resolving]

NARRATIVE: CASE EVENT DATE: 20171210
